FAERS Safety Report 13790972 (Version 1)
Quarter: 2017Q3

REPORT INFORMATION
  Report Type: Spontaneous
  Country: SK (occurrence: SK)
  Receive Date: 20170725
  Receipt Date: 20170725
  Transmission Date: 20171127
  Serious: Yes (Hospitalization)
  Sender: FDA-Public Use
  Company Number: SK-SA-2017SA120066

PATIENT
  Age: 39 Year
  Sex: Male
  Weight: 65 kg

DRUGS (2)
  1. INSULIN LISPRO [Suspect]
     Active Substance: INSULIN LISPRO
     Indication: TYPE 1 DIABETES MELLITUS
     Dosage: 20-20-16 IU
     Route: 058
  2. INSULIN GLARGINE [Suspect]
     Active Substance: INSULIN GLARGINE
     Indication: TYPE 1 DIABETES MELLITUS
     Route: 058

REACTIONS (4)
  - Blood glucose abnormal [Recovered/Resolved]
  - Diabetic neuropathy [Unknown]
  - Cardiac autonomic neuropathy [Unknown]
  - Postprandial hypoglycaemia [Recovered/Resolved]
